FAERS Safety Report 16764127 (Version 2)
Quarter: 2019Q3

REPORT INFORMATION
  Report Type: Spontaneous
  Country: BE (occurrence: BE)
  Receive Date: 20190902
  Receipt Date: 20190909
  Transmission Date: 20191005
  Serious: Yes (Other)
  Sender: FDA-Public Use
  Company Number: PHHY2019BE198653

PATIENT
  Age: 59 Year
  Sex: Female

DRUGS (18)
  1. AFINITOR [Suspect]
     Active Substance: EVEROLIMUS
     Indication: HER-2 POSITIVE BREAST CANCER
     Dosage: UNK
     Route: 065
     Dates: start: 201406, end: 201701
  2. EXEMESTANE. [Suspect]
     Active Substance: EXEMESTANE
     Indication: HER-2 POSITIVE BREAST CANCER
     Dosage: UNK
     Route: 065
     Dates: start: 201406, end: 201701
  3. CARBOPLATINUM [Suspect]
     Active Substance: CARBOPLATIN
     Indication: HER-2 POSITIVE BREAST CANCER
     Dosage: UNK
     Route: 065
     Dates: start: 2017, end: 201701
  4. HERCEPTIN [Suspect]
     Active Substance: TRASTUZUMAB
     Dosage: UNK
     Route: 065
     Dates: start: 2017, end: 201711
  5. HERCEPTIN [Suspect]
     Active Substance: TRASTUZUMAB
     Dosage: UNK
     Route: 065
  6. HERCEPTIN [Suspect]
     Active Substance: TRASTUZUMAB
     Dosage: UNK
     Route: 065
     Dates: start: 201604, end: 201611
  7. TAXOL [Suspect]
     Active Substance: PACLITAXEL
     Indication: HER-2 POSITIVE BREAST CANCER
     Dosage: UNK
     Route: 065
     Dates: start: 201404, end: 201406
  8. KADCYLA [Suspect]
     Active Substance: ADO-TRASTUZUMAB EMTANSINE
     Indication: HER-2 POSITIVE BREAST CANCER
     Dosage: UNK
     Route: 065
     Dates: start: 201711, end: 201810
  9. GEMCITABINE. [Suspect]
     Active Substance: GEMCITABINE
     Indication: HER-2 POSITIVE BREAST CANCER
     Dosage: UNK
     Route: 065
     Dates: start: 2017, end: 201701
  10. XELODA [Suspect]
     Active Substance: CAPECITABINE
     Indication: HER-2 POSITIVE BREAST CANCER
     Dosage: UNK
     Route: 048
     Dates: start: 201604, end: 201611
  11. HERCEPTIN [Suspect]
     Active Substance: TRASTUZUMAB
     Dosage: UNK
     Route: 065
     Dates: start: 201411, end: 201604
  12. ERIBULIN [Suspect]
     Active Substance: ERIBULIN
     Indication: HER-2 POSITIVE BREAST CANCER
     Dosage: UNK
     Route: 065
  13. ENDOXAN [Suspect]
     Active Substance: CYCLOPHOSPHAMIDE
     Indication: HER-2 POSITIVE BREAST CANCER
     Dosage: 6 CYCLIC, UNK
     Route: 065
     Dates: start: 201406, end: 201410
  14. XELODA [Suspect]
     Active Substance: CAPECITABINE
     Dosage: UNK
     Route: 048
     Dates: start: 201810, end: 201904
  15. HERCEPTIN [Suspect]
     Active Substance: TRASTUZUMAB
     Indication: HER-2 POSITIVE BREAST CANCER
     Dosage: UNK
     Route: 065
     Dates: start: 201404, end: 201406
  16. EPIRUBICIN [Suspect]
     Active Substance: EPIRUBICIN
     Indication: HER-2 POSITIVE BREAST CANCER
     Dosage: UNK (6 CYCLI)
     Route: 065
     Dates: start: 201406, end: 201410
  17. TYVERB [Suspect]
     Active Substance: LAPATINIB
     Indication: HER-2 POSITIVE BREAST CANCER
     Dosage: UNK
     Route: 065
     Dates: start: 201810, end: 201904
  18. NAVELBINE [Suspect]
     Active Substance: VINORELBINE TARTRATE
     Indication: HER-2 POSITIVE BREAST CANCER
     Dosage: UNK (6 CYCLI)
     Route: 065
     Dates: start: 201411, end: 201604

REACTIONS (1)
  - Haematotoxicity [Unknown]

NARRATIVE: CASE EVENT DATE: 201701
